FAERS Safety Report 24373168 (Version 1)
Quarter: 2024Q3

REPORT INFORMATION
  Report Type: Spontaneous
  Country: NO (occurrence: NO)
  Receive Date: 20240927
  Receipt Date: 20240927
  Transmission Date: 20241017
  Serious: Yes (Other)
  Sender: ROCHE
  Company Number: NO-ROCHE-10000087866

PATIENT
  Sex: Male

DRUGS (2)
  1. ALECENSA [Suspect]
     Active Substance: ALECTINIB HYDROCHLORIDE
     Indication: Lung cancer metastatic
     Route: 065
  2. LORLATINIB [Concomitant]
     Active Substance: LORLATINIB

REACTIONS (2)
  - Disease progression [Unknown]
  - Drug ineffective [Unknown]
